FAERS Safety Report 14167144 (Version 3)
Quarter: 2018Q1

REPORT INFORMATION
  Report Type: Report from Study
  Country: US (occurrence: US)
  Receive Date: 20171107
  Receipt Date: 20180123
  Transmission Date: 20180508
  Serious: Yes (Death, Hospitalization, Other)
  Sender: FDA-Public Use
  Company Number: US-BAYER-2017-209095

PATIENT
  Age: 66 Year
  Sex: Male

DRUGS (11)
  1. NEXAVAR [Suspect]
     Active Substance: SORAFENIB
     Indication: HEPATOCELLULAR CARCINOMA
     Dosage: UNK
     Route: 048
     Dates: start: 20171122
  2. FENTANYL. [Concomitant]
     Active Substance: FENTANYL
     Indication: PAIN
  3. NEXAVAR [Suspect]
     Active Substance: SORAFENIB
     Indication: METASTASES TO BONE
     Dosage: 600 MG (200 TABLET EVERY AM, 1 TABLET EVERY PM)
     Route: 048
     Dates: start: 20171002, end: 20171019
  4. NEXAVAR [Suspect]
     Active Substance: SORAFENIB
     Indication: HEPATOCELLULAR CARCINOMA
     Dosage: UNK
     Route: 048
     Dates: start: 20171022, end: 20171025
  5. OXYCODONE [Concomitant]
     Active Substance: OXYCODONE
     Indication: PAIN
  6. LACTULOSE. [Concomitant]
     Active Substance: LACTULOSE
  7. NEXAVAR [Suspect]
     Active Substance: SORAFENIB
     Indication: HEPATOCELLULAR CARCINOMA
     Dosage: 200 MG, QD
     Route: 048
     Dates: start: 20171130
  8. NEXAVAR [Suspect]
     Active Substance: SORAFENIB
     Indication: HEPATOCELLULAR CARCINOMA
     Dosage: 200 MG, BID
     Route: 048
     Dates: start: 20171104
  9. NEXAVAR [Suspect]
     Active Substance: SORAFENIB
     Indication: HEPATOCELLULAR CARCINOMA
     Dosage: UNK
     Route: 048
     Dates: start: 20170922, end: 2017
  10. NEXAVAR [Suspect]
     Active Substance: SORAFENIB
     Indication: HEPATOCELLULAR CARCINOMA
     Dosage: 400 MG, BID
     Route: 048
  11. XGEVA [Concomitant]
     Active Substance: DENOSUMAB

REACTIONS (16)
  - Dehydration [Recovering/Resolving]
  - Food refusal [Recovering/Resolving]
  - Asthenia [None]
  - Mental impairment [Recovering/Resolving]
  - Leukocytosis [None]
  - Hepatic enzyme increased [Recovering/Resolving]
  - Muscle atrophy [Recovering/Resolving]
  - Metastases to bone [None]
  - Dehydration [None]
  - Hyponatraemia [None]
  - Fluid intake reduced [Recovering/Resolving]
  - Anaemia [None]
  - Fatigue [None]
  - Death [Fatal]
  - Disorientation [Recovering/Resolving]
  - Mobility decreased [None]

NARRATIVE: CASE EVENT DATE: 20171004
